FAERS Safety Report 12809662 (Version 3)
Quarter: 2017Q4

REPORT INFORMATION
  Report Type: Report from Study
  Country: US (occurrence: US)
  Receive Date: 20161005
  Receipt Date: 20171113
  Transmission Date: 20180320
  Serious: Yes (Hospitalization, Other)
  Sender: FDA-Public Use
  Company Number: US-ROCHE-1632867

PATIENT
  Age: 56 Year
  Sex: Female
  Weight: 77.7 kg

DRUGS (8)
  1. BEVACIZUMAB. [Suspect]
     Active Substance: BEVACIZUMAB
     Dosage: 4TH COURSE?THERAPY RECEIVED DATES: 09/JUN/2015 (5TH COURSE), 02/JUL/2015 (6TH COURSE), 14/MAY/2017 (
     Route: 042
     Dates: start: 20150514, end: 20150709
  2. CARBOPLATIN. [Suspect]
     Active Substance: CARBOPLATIN
     Indication: OVARIAN EPITHELIAL CANCER
     Dosage: LAST DOSE PRIOR TO SAE ON 14/MAY/2015?DOSE: AUC=6 IV OVER 30 MIN ON DAY 1
     Route: 042
     Dates: start: 20150310
  3. BEVACIZUMAB. [Suspect]
     Active Substance: BEVACIZUMAB
     Indication: OVARIAN EPITHELIAL CANCER
     Dosage: BEVACIZUMAB: 15 MG/KG IV OVER 30-90 MINS ON DAY 1?LAST DOSE PRIOR TO SAE ON 23/APR/2015
     Route: 042
     Dates: start: 20150403, end: 20150514
  4. PACLITAXEL. [Suspect]
     Active Substance: PACLITAXEL
     Indication: OVARIAN EPITHELIAL CANCER
     Dosage: 80 MG/M2 IV OVER 1 HR ON DAYS 1, 8,15?LAST DOSE PRIOR TO SAE ON 28/MAY/2015
     Route: 042
     Dates: start: 20150310
  5. VELIPARIB [Suspect]
     Active Substance: VELIPARIB
     Route: 048
     Dates: start: 20150607
  6. VELIPARIB [Suspect]
     Active Substance: VELIPARIB
     Dosage: ON DAYS 1-21?THERAPY RECEIVED DATES: 23/APR/2015 (3RD COURSE), 10/MAR/2015 (4 TH COURSE)14/MAY/2015
     Route: 048
     Dates: start: 20150403, end: 20150709
  7. BEVACIZUMAB. [Suspect]
     Active Substance: BEVACIZUMAB
     Dosage: 3RD COURSE
     Route: 042
     Dates: start: 20150423
  8. VELIPARIB [Suspect]
     Active Substance: VELIPARIB
     Indication: OVARIAN EPITHELIAL CANCER
     Dosage: LAST DOSE PRIOR TO SAE ON 18/MAY/2015?DOSE: 200 MG PO BID ON DAYS -2-5
     Route: 048
     Dates: start: 20150509

REACTIONS (8)
  - Diarrhoea [Recovering/Resolving]
  - Anaemia [Unknown]
  - Muscular weakness [Unknown]
  - White blood cell count decreased [Unknown]
  - Dehydration [Unknown]
  - Neutrophil count decreased [Unknown]
  - Diarrhoea [Unknown]
  - Fall [Unknown]

NARRATIVE: CASE EVENT DATE: 20150602
